FAERS Safety Report 6120675-9 (Version None)
Quarter: 2009Q1

REPORT INFORMATION
  Report Type: 
  Country: None (occurrence: None)
  Receive Date: 20090317
  Receipt Date: 20090306
  Transmission Date: 20090719
  Serious: Yes (Other)
  Sender: FDA-Public Use
  Company Number: FR-AMGEN-UK264969

PATIENT
  Sex: Female
  Weight: 100 kg

DRUGS (4)
  1. ROMIPLOSTIM [Suspect]
     Indication: IDIOPATHIC THROMBOCYTOPENIC PURPURA
     Route: 058
     Dates: start: 20080110
  2. NEXIUM [Concomitant]
     Route: 048
  3. CORTANCYL [Concomitant]
     Route: 048
  4. ATACAND [Concomitant]
     Route: 048

REACTIONS (3)
  - ACCIDENTAL OVERDOSE [None]
  - INCORRECT DOSE ADMINISTERED [None]
  - THROMBOCYTHAEMIA [None]
